FAERS Safety Report 6100906-1 (Version None)
Quarter: 2009Q1

REPORT INFORMATION
  Report Type: 
  Country: None (occurrence: None)
  Receive Date: 20090304
  Receipt Date: 20090224
  Transmission Date: 20090719
  Serious: Yes (Other)
  Sender: FDA-Public Use
  Company Number: FR-JNJFOC-20090205888

PATIENT
  Age: 63 Year
  Sex: Male

DRUGS (9)
  1. RISPERDAL [Suspect]
     Indication: DRUG USE FOR UNKNOWN INDICATION
     Dosage: (1MG/ML) SINCE AROUND MORE THAN 3 YEARS
     Route: 048
  2. IKARAN LP [Concomitant]
     Route: 065
  3. SODIUM CHLORIDE [Concomitant]
     Route: 065
  4. PARIET [Concomitant]
     Route: 065
  5. RIVOTRIL [Concomitant]
     Dosage: 25 MG/ML
     Route: 065
  6. SPECIAFOLDINE [Concomitant]
     Route: 065
  7. TARDYFERON [Concomitant]
     Route: 065
  8. TERCIAN [Concomitant]
     Route: 065
  9. CARBAMAZEPINE LP [Concomitant]
     Route: 065

REACTIONS (4)
  - CONFUSIONAL STATE [None]
  - HYPONATRAEMIA [None]
  - POLYDIPSIA [None]
  - POLYURIA [None]
